FAERS Safety Report 15940194 (Version 1)
Quarter: 2019Q1

REPORT INFORMATION
  Report Type: Spontaneous
  Country: US (occurrence: US)
  Receive Date: 20190208
  Receipt Date: 20190208
  Transmission Date: 20190417
  Serious: Yes (Disabling)
  Sender: FDA-Public Use
  Company Number: US-TEVA-2019-US-1008372

PATIENT

DRUGS (4)
  1. DOCETAXEL INJECTION CONCENTRATE [Suspect]
     Active Substance: DOCETAXEL
     Route: 065
     Dates: start: 20130530, end: 20130806
  2. DOCEFREZ [Suspect]
     Active Substance: DOCETAXEL ANHYDROUS
     Route: 065
     Dates: start: 20130530, end: 20130806
  3. DOCETAXEL INJECTION CONCENTRATE [Suspect]
     Active Substance: DOCETAXEL
     Route: 065
     Dates: start: 20130530, end: 20130806
  4. TAXOTERE [Suspect]
     Active Substance: DOCETAXEL
     Indication: CHEMOTHERAPY
     Route: 065

REACTIONS (1)
  - Alopecia [Not Recovered/Not Resolved]
